FAERS Safety Report 7681729-9 (Version None)
Quarter: 2011Q3

REPORT INFORMATION
  Report Type: 
  Country: None (occurrence: None)
  Receive Date: 20110812
  Receipt Date: 20110809
  Transmission Date: 20111222
  Serious: Yes (Death)
  Sender: FDA-Public Use
  Company Number: US-GILEAD-2011-0041577

PATIENT
  Sex: Female

DRUGS (4)
  1. REVATIO [Concomitant]
  2. LETAIRIS [Suspect]
     Indication: PULMONARY HYPERTENSION
     Route: 048
     Dates: start: 20091202
  3. FLOLAN [Concomitant]
  4. LETAIRIS [Suspect]
     Indication: SCLERODERMA

REACTIONS (2)
  - CARDIOGENIC SHOCK [None]
  - PULMONARY HYPERTENSION [None]
